FAERS Safety Report 11693965 (Version 1)
Quarter: 2015Q4

REPORT INFORMATION
  Report Type: Report from Study
  Country: CA (occurrence: CA)
  Receive Date: 20151103
  Receipt Date: 20151103
  Transmission Date: 20160304
  Serious: Yes (Hospitalization, Other)
  Sender: FDA-Public Use
  Company Number: CA-TAKEDA-2015TUS015053

PATIENT
  Age: 34 Year
  Sex: Female

DRUGS (13)
  1. ONGLYZA [Concomitant]
     Active Substance: SAXAGLIPTIN HYDROCHLORIDE
     Dosage: 5 MG, QD
  2. CALCIUM [Concomitant]
     Active Substance: CALCIUM
     Dosage: 500 MG, UNK
  3. SYNTHROID [Concomitant]
     Active Substance: LEVOTHYROXINE SODIUM
     Dosage: 0.1 MG, QD
  4. AZATHIOPRINE. [Concomitant]
     Active Substance: AZATHIOPRINE
     Dosage: 50 MG, QD
  5. ALOPURINOL [Concomitant]
     Active Substance: ALLOPURINOL
     Dosage: UNK, BID
  6. VEDOLIZUMAB [Suspect]
     Active Substance: VEDOLIZUMAB
     Indication: CROHN^S DISEASE
     Dosage: 300 MG, UNK
     Route: 042
     Dates: start: 20150702
  7. APO HYDROXYQUINE [Concomitant]
     Dosage: 200 MG, BID
  8. GLUMETZA [Concomitant]
     Active Substance: METFORMIN HYDROCHLORIDE
     Dosage: 500 MG, QD
  9. MYLAN BUPROPION-XL [Concomitant]
     Dosage: 300 MG, UNK
  10. SULFATRIM                          /00086101/ [Concomitant]
     Dosage: 800 MG, 3/WEEK
  11. ONDANSETRON [Concomitant]
     Active Substance: ONDANSETRON
     Dosage: 8 MG, QD
  12. DEXILANT [Concomitant]
     Active Substance: DEXLANSOPRAZOLE
     Dosage: 60 MG, QD
  13. PREDNISONE. [Concomitant]
     Active Substance: PREDNISONE
     Dosage: 35 MG, QD

REACTIONS (2)
  - Small intestinal obstruction [Unknown]
  - Off label use [Unknown]

NARRATIVE: CASE EVENT DATE: 20150702
